FAERS Safety Report 5435594-0 (Version None)
Quarter: 2007Q3

REPORT INFORMATION
  Report Type: 
  Country: None (occurrence: None)
  Receive Date: 20070831
  Receipt Date: 20070822
  Transmission Date: 20080115
  Serious: No
  Sender: FDA-Public Use
  Company Number: A0671142A

PATIENT
  Age: 30 Year

DRUGS (1)
  1. ALLI [Suspect]
     Dates: start: 20070622

REACTIONS (5)
  - ABDOMINAL PAIN [None]
  - ABDOMINAL PAIN UPPER [None]
  - HEADACHE [None]
  - INSOMNIA [None]
  - STOMACH DISCOMFORT [None]
